FAERS Safety Report 16668938 (Version 2)
Quarter: 2019Q3

REPORT INFORMATION
  Report Type: Spontaneous
  Country: JP (occurrence: JP)
  Receive Date: 20190805
  Receipt Date: 20190822
  Transmission Date: 20191004
  Serious: Yes (Other)
  Sender: FDA-Public Use
  Company Number: JP-ELI_LILLY_AND_COMPANY-JP201907014692

PATIENT
  Age: 56 Year
  Sex: Female

DRUGS (5)
  1. BETAMETHASONE;CHLORPHENAMINE MALEATE [Concomitant]
     Dosage: UNK
  2. RUPAFIN [Concomitant]
     Active Substance: RUPATADINE FUMARATE
     Dosage: UNK
  3. LIPITOR [Concomitant]
     Active Substance: ATORVASTATIN CALCIUM
  4. TALTZ [Suspect]
     Active Substance: IXEKIZUMAB
     Indication: PSORIASIS
     Dosage: 80 MG, OTHER
     Route: 058
     Dates: start: 20180601, end: 20190524
  5. XYZAL [Concomitant]
     Active Substance: LEVOCETIRIZINE DIHYDROCHLORIDE
     Dosage: UNK

REACTIONS (1)
  - Drug-induced liver injury [Recovered/Resolved]

NARRATIVE: CASE EVENT DATE: 20190530
